FAERS Safety Report 17338670 (Version 1)
Quarter: 2020Q1

REPORT INFORMATION
  Report Type: Spontaneous
  Country: GB (occurrence: GB)
  Receive Date: 20200129
  Receipt Date: 20200129
  Transmission Date: 20200409
  Serious: Yes (Other)
  Sender: FDA-Public Use
  Company Number: GB-SA-2020SA018957

PATIENT
  Age: 59 Year
  Sex: Male

DRUGS (4)
  1. INSULIN GLARGINE [Suspect]
     Active Substance: INSULIN GLARGINE
  2. NOVORAPID [Suspect]
     Active Substance: INSULIN ASPART
  3. HUMALOG [Suspect]
     Active Substance: INSULIN LISPRO
  4. ACTRAPID [Suspect]
     Active Substance: INSULIN HUMAN

REACTIONS (5)
  - Ichthyosis [Unknown]
  - Lipodystrophy acquired [Unknown]
  - Injection site discolouration [Unknown]
  - Skin hypertrophy [Unknown]
  - Skin plaque [Unknown]
